FAERS Safety Report 6527028-X (Version None)
Quarter: 2010Q1

REPORT INFORMATION
  Report Type: 
  Country: None (occurrence: None)
  Receive Date: 20100105
  Receipt Date: 20091228
  Transmission Date: 20100710
  Serious: Yes (Other)
  Sender: FDA-Public Use
  Company Number: US-SANOFI-AVENTIS-2009SA011910

PATIENT
  Sex: Male

DRUGS (7)
  1. LANTUS [Suspect]
     Indication: DIABETES MELLITUS
     Dosage: DOSE:75 UNIT(S)
     Route: 058
  2. SOLOSTAR [Suspect]
     Indication: DIABETES MELLITUS
     Dosage: DOSE:75 UNIT(S)
     Route: 058
  3. NOVOLOG [Concomitant]
  4. VICODIN [Concomitant]
     Indication: PAIN
  5. ALL OTHER THERAPEUTIC PRODUCTS [Concomitant]
  6. ANTIHYPERTENSIVES [Concomitant]
  7. ALL OTHER THERAPEUTIC PRODUCTS [Concomitant]

REACTIONS (12)
  - ABASIA [None]
  - BLISTER [None]
  - CARDIAC DISORDER [None]
  - CATARACT [None]
  - CHEST PAIN [None]
  - CHOLELITHIASIS [None]
  - DIABETES MELLITUS INADEQUATE CONTROL [None]
  - DYSPNOEA [None]
  - GANGRENE [None]
  - HYPOAESTHESIA [None]
  - NEPHROLITHIASIS [None]
  - NEUROPATHY PERIPHERAL [None]
